FAERS Safety Report 6958562-6 (Version None)
Quarter: 2010Q3

REPORT INFORMATION
  Report Type: 
  Country: None (occurrence: None)
  Receive Date: 20100831
  Receipt Date: 20100817
  Transmission Date: 20110219
  Serious: Yes (Other)
  Sender: FDA-Public Use
  Company Number: JP-ROCHE-723561

PATIENT

DRUGS (1)
  1. TAMIFLU [Suspect]
     Dosage: START DATE: LATE DECEMBER 2009, DOSE FORM: ORAL FORMATION
     Route: 064
     Dates: start: 20091201

REACTIONS (2)
  - DRUG EXPOSURE DURING PREGNANCY [None]
  - SUBDURAL HAEMATOMA [None]
